FAERS Safety Report 6781228-2 (Version None)
Quarter: 2010Q2

REPORT INFORMATION
  Report Type: 
  Country: None (occurrence: None)
  Receive Date: 20100621
  Receipt Date: 20100616
  Transmission Date: 20101027
  Serious: Yes (Life-Threatening)
  Sender: FDA-Public Use
  Company Number: JP-ASTRAZENECA-2010SE28247

PATIENT
  Age: 51 Year
  Sex: Male

DRUGS (2)
  1. ROPIVACAINE HYDROCHLORIDE [Suspect]
     Indication: ANALGESIC THERAPY
     Dosage: CONTINOUS ADMINISTRATION OF 3 % DILUTED SOLUTION
     Route: 065
  2. EPINEPHRINE [Concomitant]

REACTIONS (1)
  - ARTERIOSPASM CORONARY [None]
